FAERS Safety Report 20753516 (Version 1)
Quarter: 2022Q2

REPORT INFORMATION
  Report Type: Spontaneous
  Country: US (occurrence: None)
  Receive Date: 20220426
  Receipt Date: 20220426
  Transmission Date: 20220720
  Serious: No
  Sender: FDA-Public Use
  Company Number: US-ROCHE-2833873

PATIENT
  Age: 85 Year
  Sex: Female

DRUGS (2)
  1. ESBRIET [Suspect]
     Active Substance: PIRFENIDONE
     Indication: Idiopathic pulmonary fibrosis
     Dosage: WITH MEALS, B-L-D
     Route: 048
     Dates: start: 20210428
  2. PREDNISONE [Concomitant]
     Active Substance: PREDNISONE
     Dates: start: 202101

REACTIONS (2)
  - Nausea [Unknown]
  - Malaise [Unknown]
